FAERS Safety Report 9626277 (Version 2)
Quarter: 2013Q4

REPORT INFORMATION
  Report Type: Spontaneous
  Country: US (occurrence: None)
  Receive Date: 20131002
  Receipt Date: 20131017
  Transmission Date: 20140711
  Serious: Yes (Hospitalization)
  Sender: FDA-Public Use
  Company Number: 2013038159

PATIENT
  Sex: Female
  Weight: 55.79 kg

DRUGS (18)
  1. PRIVIGEN [Suspect]
     Indication: HYPOGLOBULINAEMIA
     Dosage: 20 G OVER, 1.5-3 HOURS
     Route: 042
  2. TRAMADOL HCL (TRAMADOL) [Concomitant]
  3. SYNTHROID (LEVOTHYROXINE SODIUM) [Concomitant]
  4. DIOVAN (VALSARTAN) [Concomitant]
  5. LOPERAMIDE (LOPERAMIDE) [Concomitant]
  6. ATENOLOL (ATENOLOL) [Concomitant]
  7. SYMBICORT [Concomitant]
  8. COENZYME (COENZYME A) [Concomitant]
  9. CHONDROITIN SULF (CHONDROITIN SULFATE) [Concomitant]
  10. FOLIC ACID (FOLIC ACID) [Concomitant]
  11. BIOTIN (BIOTIN) [Concomitant]
  12. CALCIUM CHEWABLE PLUS (CALCIUM) [Concomitant]
  13. VITAMIN C [Concomitant]
  14. VITAMIN D (ERGOCALCIFEROL) [Concomitant]
  15. GLUCOSAMINE (GLUCOSAMINE) [Concomitant]
  16. NORMAL SALINE (SODIUM CHLORIDE) [Concomitant]
  17. SODIUM CHLORIDE [Concomitant]
  18. EPI PEN (EPINEPHRINE) [Concomitant]

REACTIONS (2)
  - Spinal fracture [None]
  - Hysterectomy [None]
